FAERS Safety Report 15392931 (Version 1)
Quarter: 2018Q3

REPORT INFORMATION
  Report Type: Spontaneous
  Country: US (occurrence: US)
  Receive Date: 20180917
  Receipt Date: 20180917
  Transmission Date: 20181010
  Serious: No
  Sender: FDA-Public Use
  Company Number: US-ASTRAZENECA-2018SF16390

PATIENT
  Sex: Female
  Weight: 74.8 kg

DRUGS (7)
  1. NEXIUM [Suspect]
     Active Substance: ESOMEPRAZOLE MAGNESIUM
     Indication: GASTROOESOPHAGEAL REFLUX DISEASE
     Dosage: 40 MG. 2 CAPSULES A DAY
     Route: 048
     Dates: start: 2001
  2. FOLIC ACID. [Concomitant]
     Active Substance: FOLIC ACID
     Indication: PERNICIOUS ANAEMIA
     Route: 048
  3. WELLBUTRIN XL [Concomitant]
     Active Substance: BUPROPION HYDROCHLORIDE
     Indication: DEPRESSION
     Route: 048
     Dates: start: 2000
  4. OMEPRAZOLE. [Suspect]
     Active Substance: OMEPRAZOLE
     Indication: GASTROOESOPHAGEAL REFLUX DISEASE
     Dosage: 40.0MG UNKNOWN
     Route: 048
     Dates: start: 20171020
  5. PRILOSEC [Suspect]
     Active Substance: OMEPRAZOLE MAGNESIUM
     Indication: GASTROOESOPHAGEAL REFLUX DISEASE
     Route: 048
     Dates: start: 1997
  6. GENERIC FOR PROZAC [Concomitant]
     Indication: DEPRESSION
     Route: 048
     Dates: start: 1985
  7. CYANOCOBALAMIN. [Concomitant]
     Active Substance: CYANOCOBALAMIN
     Indication: IRON DEFICIENCY ANAEMIA
     Route: 030
     Dates: start: 1985

REACTIONS (7)
  - Drug ineffective [Unknown]
  - Gastrooesophageal reflux disease [Unknown]
  - Abdominal hernia [Unknown]
  - Type 2 diabetes mellitus [Unknown]
  - Weight decreased [Unknown]
  - Constipation [Unknown]
  - Off label use [Unknown]
